FAERS Safety Report 8218804-6 (Version None)
Quarter: 2012Q1

REPORT INFORMATION
  Report Type: 
  Country: None (occurrence: None)
  Receive Date: 20120319
  Receipt Date: 20120313
  Transmission Date: 20120608
  Serious: Yes (Death, Hospitalization)
  Sender: FDA-Public Use
  Company Number: PHHO2012ZA000500

PATIENT
  Sex: Male

DRUGS (2)
  1. IRON SUPPLEMENTS [Concomitant]
     Dosage: UNK
     Dates: start: 20110610
  2. EVEROLIMUS [Suspect]
     Indication: METASTATIC RENAL CELL CARCINOMA
     Dosage: 5 MG, ALTERNATE DAYS
     Route: 048
     Dates: start: 20111012

REACTIONS (5)
  - NEOPLASM MALIGNANT [None]
  - DEHYDRATION [None]
  - HYPOCHROMIC ANAEMIA [None]
  - NEOPLASM PROGRESSION [None]
  - ASTHENIA [None]
